FAERS Safety Report 4602226-0 (Version None)
Quarter: 2005Q2

REPORT INFORMATION
  Report Type: 
  Country: None (occurrence: None)
  Receive Date: 20050215
  Receipt Date: 20040917
  Transmission Date: 20051028
  Serious: Yes (Hospitalization)
  Sender: FDA-Public Use
  Company Number: 2004IM000868

PATIENT
  Age: 79 Year
  Sex: Female
  Weight: 62.5964 kg

DRUGS (3)
  1. ACTIMMUNE [Suspect]
     Indication: IDIOPATHIC PULMONARY FIBROSIS
     Dosage: 200 UG;TIW;SUBCUTANEOUS
     Route: 058
     Dates: start: 20040901, end: 20040913
  2. PREDNISONE [Concomitant]
  3. ESTRADIOL [Concomitant]

REACTIONS (2)
  - CHEST PAIN [None]
  - PANCREATITIS [None]
